FAERS Safety Report 25848178 (Version 1)
Quarter: 2025Q3

REPORT INFORMATION
  Report Type: Spontaneous
  Country: EU (occurrence: EU)
  Receive Date: 20250925
  Receipt Date: 20250925
  Transmission Date: 20251020
  Serious: Yes (Hospitalization, Other)
  Sender: TEVA
  Company Number: EU-TEVA-VS-3374837

PATIENT
  Age: 74 Year
  Sex: Male

DRUGS (2)
  1. IBUPROFEN [Suspect]
     Active Substance: IBUPROFEN
     Indication: Osteoarthritis
     Route: 065
  2. DEXKETOPROFEN\TRAMADOL [Suspect]
     Active Substance: DEXKETOPROFEN\TRAMADOL
     Indication: Osteoarthritis
     Route: 065

REACTIONS (3)
  - Acute kidney injury [Unknown]
  - Electrolyte imbalance [Unknown]
  - Anuria [Unknown]
